FAERS Safety Report 8407586-0 (Version None)
Quarter: 2012Q2

REPORT INFORMATION
  Report Type: 
  Country: None (occurrence: None)
  Receive Date: 20120604
  Receipt Date: 20120521
  Transmission Date: 20120825
  Serious: No
  Sender: FDA-Public Use
  Company Number: US-ASTRAZENECA-2010SE07098

PATIENT
  Age: 75 Year
  Sex: Female

DRUGS (3)
  1. NEXIUM [Suspect]
     Indication: GASTROOESOPHAGEAL REFLUX DISEASE
     Route: 048
  2. TOPROL-XL [Suspect]
     Route: 048
  3. CRESTOR [Suspect]
     Route: 048

REACTIONS (7)
  - GASTROOESOPHAGEAL REFLUX DISEASE [None]
  - MUSCULAR WEAKNESS [None]
  - PAIN [None]
  - NERVE COMPRESSION [None]
  - TREMOR [None]
  - PARKINSON'S DISEASE [None]
  - MALAISE [None]
